FAERS Safety Report 17741724 (Version 3)
Quarter: 2020Q3

REPORT INFORMATION
  Report Type: Report from Study
  Country: US (occurrence: US)
  Receive Date: 20200504
  Receipt Date: 20200713
  Transmission Date: 20201102
  Serious: No
  Sender: FDA-Public Use
  Company Number: US-DSJP-DSU-2020-112877

PATIENT

DRUGS (3)
  1. PEXIDARTINIB [Suspect]
     Active Substance: PEXIDARTINIB
     Indication: SOFT TISSUE NEOPLASM
  2. PEXIDARTINIB [Suspect]
     Active Substance: PEXIDARTINIB
     Indication: CONNECTIVE TISSUE NEOPLASM
     Dosage: 400 MG, BID
     Route: 048
     Dates: start: 20200509
  3. PEXIDARTINIB [Suspect]
     Active Substance: PEXIDARTINIB
     Indication: SYNOVITIS
     Dosage: 400 MG, BID
     Route: 048
     Dates: start: 202004

REACTIONS (5)
  - Rash [Recovered/Resolved]
  - Taste disorder [Not Recovered/Not Resolved]
  - Hepatic enzyme increased [Recovered/Resolved]
  - Sunburn [Recovered/Resolved]
  - Hair colour changes [Not Recovered/Not Resolved]

NARRATIVE: CASE EVENT DATE: 2020
